FAERS Safety Report 20902690 (Version 1)
Quarter: 2022Q2

REPORT INFORMATION
  Report Type: Report from Study
  Country: US (occurrence: US)
  Receive Date: 20220601
  Receipt Date: 20220601
  Transmission Date: 20220720
  Serious: Yes (Other)
  Sender: FDA-Public Use
  Company Number: US-BRISTOL-MYERS SQUIBB COMPANY-2022-043305

PATIENT
  Age: 81 Year
  Sex: Female
  Weight: 43.544 kg

DRUGS (12)
  1. REVLIMID [Suspect]
     Active Substance: LENALIDOMIDE
     Indication: Plasma cell myeloma
     Dosage: FOR 28 DAYS
     Route: 048
     Dates: start: 20210906
  2. TYLENOL [Concomitant]
     Active Substance: ACETAMINOPHEN
  3. GABAPENTIN [Concomitant]
     Active Substance: GABAPENTIN
  4. FOSAMAX [Concomitant]
     Active Substance: ALENDRONATE SODIUM
  5. FAMOTIDINE [Concomitant]
     Active Substance: FAMOTIDINE
  6. GLIPIZIDE [Concomitant]
     Active Substance: GLIPIZIDE
  7. LEVOTHYROXINE [Concomitant]
     Active Substance: LEVOTHYROXINE
  8. ASPIRIN [Concomitant]
     Active Substance: ASPIRIN
  9. ATORVASTATIN CALCIUM [Concomitant]
     Active Substance: ATORVASTATIN CALCIUM
  10. ZANAFLEX [Concomitant]
     Active Substance: TIZANIDINE HYDROCHLORIDE
  11. PLAVIX [Concomitant]
     Active Substance: CLOPIDOGREL BISULFATE
  12. DICLOFENAC SODIUM [Concomitant]
     Active Substance: DICLOFENAC SODIUM

REACTIONS (1)
  - COVID-19 [Unknown]
